FAERS Safety Report 11423672 (Version 1)
Quarter: 2015Q3

REPORT INFORMATION
  Report Type: Spontaneous
  Country: US (occurrence: US)
  Receive Date: 20150827
  Receipt Date: 20150827
  Transmission Date: 20151125
  Serious: No
  Sender: FDA-Public Use
  Company Number: US-JNJFOC-20150106436

PATIENT
  Age: 41 Year
  Sex: Female
  Weight: 72.58 kg

DRUGS (2)
  1. MOTRIN IB [Suspect]
     Active Substance: IBUPROFEN
     Indication: BACK PAIN
     Dosage: 1 - 2 CAPLETS, EVERY 8 HOURS, BEGINNING APPROXIMATELY 2 WEEKS AGO
     Route: 048
  2. MOTRIN IB [Suspect]
     Active Substance: IBUPROFEN
     Route: 048

REACTIONS (3)
  - Incorrect dosage administered [Unknown]
  - Product label issue [Unknown]
  - Insomnia [Not Recovered/Not Resolved]
